FAERS Safety Report 12500371 (Version 6)
Quarter: 2016Q4

REPORT INFORMATION
  Report Type: Spontaneous
  Country: US (occurrence: US)
  Receive Date: 20160627
  Receipt Date: 20161206
  Transmission Date: 20170207
  Serious: No
  Sender: FDA-Public Use
  Company Number: US-PFIZER INC-2016311447

PATIENT
  Age: 63 Year
  Sex: Female
  Weight: 65.77 kg

DRUGS (41)
  1. PREMARIN [Suspect]
     Active Substance: ESTROGENS, CONJUGATED
     Dosage: UNK, DAILY (0.625 1 CM)
  2. PROTONIX [Suspect]
     Active Substance: PANTOPRAZOLE SODIUM
     Dosage: 120 MG, 2X/DAY
  3. NEURONTIN [Suspect]
     Active Substance: GABAPENTIN
     Indication: BACK PAIN
     Dosage: 300 MG, 1X/DAY, AS NEEDED
  4. BETHANECHOL [Concomitant]
     Active Substance: BETHANECHOL
     Dosage: 10 MG (1 TABLET), 3X/DAY
  5. FLUTICASONE PROPIONATE. [Concomitant]
     Active Substance: FLUTICASONE PROPIONATE
     Dosage: 1 TO 2 SPRAYS OF 50 MCG, 2X/DAY
  6. ROBAXIN [Concomitant]
     Active Substance: METHOCARBAMOL
     Indication: BACK PAIN
     Dosage: 750 MG (1 TABLET), AS NEEDED (EVERY 4 HOURS)
  7. VITAMIN B12 [Concomitant]
     Active Substance: CYANOCOBALAMIN
     Indication: SUPPLEMENTATION THERAPY
     Dosage: 10000 MG (2 TABLETS OF 5000 MG), DAILY
  8. POTASSIUM [Concomitant]
     Active Substance: POTASSIUM
     Indication: PROPHYLAXIS
     Dosage: 10 MEQ, 1X/DAY (IN THE MORNING)
  9. MAGNESIUM [Concomitant]
     Active Substance: MAGNESIUM
     Indication: PROPHYLAXIS
     Dosage: 250 MG, 1X/DAY (IN THE MORNING)
  10. DEXILANT [Concomitant]
     Active Substance: DEXLANSOPRAZOLE
     Dosage: 120 MG (2 CAPSULES OF 60 MG), 2X/DAY
  11. POTASSIUM CL [Concomitant]
     Active Substance: POTASSIUM CHLORIDE
     Dosage: 10 MEQ (1 TABLET), DAILY
  12. PERCOCET [Concomitant]
     Active Substance: ACETAMINOPHEN\OXYCODONE HYDROCHLORIDE
     Indication: BACK PAIN
     Dosage: 1 DF (1 TABLET OF 5/325 MG), AS NEEDED (EVERY 4 HOURS)
  13. VOLTAREN [Concomitant]
     Active Substance: DICLOFENAC SODIUM
     Indication: BACK PAIN
     Dosage: 1 %, AS NEEDED (3X/DAY)
     Route: 061
  14. VOLTAREN [Concomitant]
     Active Substance: DICLOFENAC SODIUM
     Indication: NEURALGIA
  15. PROMETHAZINE [Concomitant]
     Active Substance: PROMETHAZINE\PROMETHAZINE HYDROCHLORIDE
     Indication: ABDOMINAL PAIN
     Dosage: 12.5 MG (1 TABLET), AS NEEDED (EVERY DAY)
  16. CLOBETASOL PROPIONATE. [Concomitant]
     Active Substance: CLOBETASOL PROPIONATE
     Indication: PSORIASIS
     Dosage: 1 DF (0.05% W/W), AS NEEDED (ONCE DAILY)
     Route: 061
  17. FISH OIL [Concomitant]
     Active Substance: FISH OIL
     Indication: SUPPLEMENTATION THERAPY
     Dosage: 1000 MG (1 CAPSULE), DAILY
  18. VITAMIN C [Concomitant]
     Active Substance: ASCORBIC ACID
     Indication: SUPPLEMENTATION THERAPY
     Dosage: 1000 MG, DAILY
  19. VITAMIN D3 [Concomitant]
     Active Substance: CHOLECALCIFEROL
     Indication: SUPPLEMENTATION THERAPY
  20. FENUGREEK SEED [Concomitant]
     Active Substance: FENUGREEK SEED
     Indication: SUPPLEMENTATION THERAPY
  21. WELLBUTRIN [Concomitant]
     Active Substance: BUPROPION HYDROCHLORIDE
     Dosage: 100 MG (1 TABLET), 3X/DAY
  22. VITAMIN D3 [Concomitant]
     Active Substance: CHOLECALCIFEROL
     Indication: OSTEOPOROSIS
     Dosage: 1000 IU, DAILY
  23. LORAZEPAM. [Concomitant]
     Active Substance: LORAZEPAM
     Dosage: 2 TO 3 TABLETS OF 1 MG, DAILY (AT BEDTIME)
  24. ROBAXIN [Concomitant]
     Active Substance: METHOCARBAMOL
     Indication: NEURALGIA
  25. PRUNELAX [Concomitant]
     Indication: SUPPLEMENTATION THERAPY
     Dosage: 15 MG, 2 TO 4 TIMES DAILY (AT BEDTIME)
  26. PREMARIN [Suspect]
     Active Substance: ESTROGENS, CONJUGATED
     Indication: HORMONE LEVEL ABNORMAL
     Dosage: 0.625 MG, 1X/DAY
  27. NEURONTIN [Suspect]
     Active Substance: GABAPENTIN
     Indication: NEURALGIA
     Dosage: 100 MG, 1X/DAY, AS NEEDED
  28. DICYCLOMINE [Concomitant]
     Active Substance: DICYCLOMINE HYDROCHLORIDE
     Indication: ABDOMINAL PAIN
     Dosage: 20 MG (1 TABLET), AS NEEDED (DAILY)
  29. BABY ASPIRIN [Concomitant]
     Active Substance: ASPIRIN
     Indication: VITAMIN SUPPLEMENTATION
     Dosage: 80 MG, 1X/DAY
  30. ALIGN PROBIOTIC [Concomitant]
     Dosage: 12 MG (1 CAPSULE), DAILY
  31. PREMARIN [Suspect]
     Active Substance: ESTROGENS, CONJUGATED
     Indication: VULVOVAGINAL DRYNESS
     Dosage: 0.5 ML, ALTERNATE DAY
     Route: 067
  32. PERCOCET [Concomitant]
     Active Substance: ACETAMINOPHEN\OXYCODONE HYDROCHLORIDE
     Indication: NEURALGIA
     Dosage: 1 DF (1 TABLET OF 10/325 MG), AS NEEDED (3X/DAY)
  33. RE-PB HYOS ELIXIR [Concomitant]
     Active Substance: ATROPINE SULFATE\HYOSCYAMINE SULFATE\PHENOBARBITAL\SCOPOLAMINE HYDROBROMIDE
     Indication: ABDOMINAL PAIN
     Dosage: 1 DF (1 TEASPOON OF 16 MG/5ML), AS NEEDED (DAILY)
  34. VITAMIN C [Concomitant]
     Active Substance: ASCORBIC ACID
     Indication: PROPHYLAXIS
  35. L-ARGININE [Concomitant]
     Active Substance: ARGININE
     Indication: SUPPLEMENTATION THERAPY
  36. FENUGREEK SEED [Concomitant]
     Active Substance: FENUGREEK SEED
     Indication: ADRENAL INSUFFICIENCY
     Dosage: 1220 MG (2 CAPSULES OF 610 MG), DAILY
  37. FUROSEMIDE. [Concomitant]
     Active Substance: FUROSEMIDE
     Dosage: 20 MG (1 TABLET), DAILY
  38. FLEXERIL [Concomitant]
     Active Substance: CYCLOBENZAPRINE HYDROCHLORIDE
     Dosage: 1 TO 2 TABLETS OF 10 MG, DAILY (AT BEDTIME)
  39. CENTRUM SILVER ADULTS 50+ [Concomitant]
     Active Substance: MINERALS\VITAMINS
     Indication: SUPPLEMENTATION THERAPY
     Dosage: 1 DF (1 CAPSULE), DAILY
  40. VITAMIN B6 [Concomitant]
     Active Substance: PYRIDOXINE HYDROCHLORIDE
     Indication: SUPPLEMENTATION THERAPY
     Dosage: 500 MG, DAILY
  41. L-ARGININE [Concomitant]
     Active Substance: ARGININE
     Indication: ADRENAL INSUFFICIENCY
     Dosage: 2000 MG (2 TABLETS OF 1000 MG), DAILY

REACTIONS (3)
  - Feeling abnormal [Recovered/Resolved]
  - Malaise [Unknown]
  - Hot flush [Unknown]

NARRATIVE: CASE EVENT DATE: 201606
